FAERS Safety Report 6297259-5 (Version None)
Quarter: 2009Q3

REPORT INFORMATION
  Report Type: 
  Country: None (occurrence: None)
  Receive Date: 20090805
  Receipt Date: 20070723
  Transmission Date: 20100115
  Serious: Yes (Hospitalization, Other)
  Sender: FDA-Public Use
  Company Number: US-ASTRAZENECA-2007UW02027

PATIENT
  Age: 44 Year
  Sex: Female
  Weight: 122 kg

DRUGS (35)
  1. SEROQUEL [Suspect]
     Indication: ANGER
     Dosage: 25 MG - 800 MG
     Route: 048
     Dates: start: 20000720, end: 20070524
  2. SEROQUEL [Suspect]
     Indication: PSYCHOTIC DISORDER
     Dosage: 25 MG - 800 MG
     Route: 048
     Dates: start: 20000720, end: 20070524
  3. SEROQUEL [Suspect]
     Indication: BIPOLAR DISORDER
     Dosage: 25 MG - 800 MG
     Route: 048
     Dates: start: 20000720, end: 20070524
  4. SEROQUEL [Suspect]
     Route: 048
     Dates: start: 20010401, end: 20030201
  5. SEROQUEL [Suspect]
     Route: 048
     Dates: start: 20010401, end: 20030201
  6. SEROQUEL [Suspect]
     Route: 048
     Dates: start: 20010401, end: 20030201
  7. TOPAMAX [Concomitant]
     Indication: MOOD SWINGS
  8. ALBUTEROL [Concomitant]
     Indication: ASTHMA
     Dosage: TWO PUFFS THREE TO FOUR TIMES DAILY AS REQUIRED
  9. GUAIFEN- PSE ER [Concomitant]
     Indication: NASAL CONGESTION
     Dosage: 1 TAB TWO TIMES A DAY AS REQUIRED
     Route: 048
  10. DARVOCET [Concomitant]
     Indication: MUSCULOSKELETAL CHEST PAIN
     Dosage: FOUR TIMES A DAY
  11. PROZAC [Concomitant]
     Indication: BIPOLAR DISORDER
     Dosage: STRENGTH 10 MG, 20 MG, 60 MG, DOSE - 300 MG DAILY
     Route: 048
  12. TRAZODONE HCL [Concomitant]
     Dosage: 100 MG - 300 MG AT NIGHT
     Route: 048
  13. MEDROXYPROGESTERONE [Concomitant]
  14. DEPAKOTE [Concomitant]
     Dosage: STRENGTH 250 MG, 500 MG. DOSE 1000 MG DAILY
  15. METFORMIN [Concomitant]
     Route: 048
  16. SERZONE [Concomitant]
     Route: 048
  17. ACTOS [Concomitant]
     Route: 048
  18. GLUCOTROL XL [Concomitant]
     Route: 048
  19. THEOPHYLLINE [Concomitant]
     Route: 048
  20. THEOPHYLLINE [Concomitant]
     Route: 048
  21. KLONOPIN [Concomitant]
     Dosage: 3 - 4 MG DAILY
     Route: 048
  22. FORADIL [Concomitant]
  23. NASONEX [Concomitant]
     Dosage: TWO PUFFS TWO TIMES A DAY
  24. SINGULAIR [Concomitant]
     Dosage: 10 - 20 MG DAILY
     Route: 048
  25. PREDNISONE [Concomitant]
     Route: 048
  26. ALEGRA [Concomitant]
     Route: 048
  27. CIMETIDINE [Concomitant]
     Dosage: STRENGTH 300 MG, 400 MG. DOSE- 600 - 900 MG DAILY
     Route: 048
  28. PROTONIX [Concomitant]
     Route: 048
  29. WELLBUTRIN SR [Concomitant]
     Route: 048
  30. XANAX [Concomitant]
     Indication: ANXIETY
     Dosage: 3 - 4 MG DAILY
  31. CARDIZEM [Concomitant]
  32. LANTUS [Concomitant]
     Dosage: 35 UNITS AT NIGHT AND U 100
  33. FLONASE [Concomitant]
     Dosage: TWO SPRAYS EACH NOSTRIL DAILY
  34. PAXIL [Concomitant]
     Dosage: 30 MG - 50 MG DAILY
  35. AMBIEN [Concomitant]
     Indication: INSOMNIA

REACTIONS (21)
  - ARTHROPOD BITE [None]
  - BRONCHITIS [None]
  - CARDIAC FAILURE CONGESTIVE [None]
  - CELLULITIS [None]
  - CHEST PAIN [None]
  - HYPERTENSION [None]
  - JOINT INJURY [None]
  - LUNG DISORDER [None]
  - MENISCUS LESION [None]
  - MENOMETRORRHAGIA [None]
  - OBSTRUCTIVE AIRWAYS DISORDER [None]
  - OEDEMA [None]
  - OSTEOARTHRITIS [None]
  - OSTEOCHONDROSIS [None]
  - RASH [None]
  - SCIATICA [None]
  - SYNCOPE [None]
  - TYPE 1 DIABETES MELLITUS [None]
  - TYPE 2 DIABETES MELLITUS [None]
  - UTERINE POLYP [None]
  - VAGINAL HAEMORRHAGE [None]
